FAERS Safety Report 6302136-7 (Version None)
Quarter: 2009Q3

REPORT INFORMATION
  Report Type: 
  Country: None (occurrence: None)
  Receive Date: 20090807
  Receipt Date: 20090729
  Transmission Date: 20100115
  Serious: Yes (Other)
  Sender: FDA-Public Use
  Company Number: JP-MERCK-0906USA01658

PATIENT
  Sex: Male
  Weight: 41 kg

DRUGS (4)
  1. PEPCID [Suspect]
     Indication: BILE DUCT CANCER
     Route: 048
     Dates: end: 20070729
  2. LASIX [Concomitant]
     Route: 065
  3. DIGOXIN [Concomitant]
     Route: 065
  4. MADOPAR [Concomitant]
     Route: 065
     Dates: end: 20070325

REACTIONS (1)
  - PARKINSONISM [None]
